FAERS Safety Report 5550952-1 (Version None)
Quarter: 2007Q4

REPORT INFORMATION
  Report Type: 
  Country: None (occurrence: None)
  Receive Date: 20071128
  Receipt Date: 20070925
  Transmission Date: 20080405
  Serious: Yes (Other)
  Sender: FDA-Public Use
  Company Number: 2007080574

PATIENT

DRUGS (3)
  1. LIPITOR [Suspect]
  2. ZOCOR [Suspect]
  3. CRESTOR [Suspect]

REACTIONS (1)
  - MYOSITIS [None]
